FAERS Safety Report 4728597-2 (Version None)
Quarter: 2005Q3

REPORT INFORMATION
  Report Type: 
  Country: None (occurrence: None)
  Receive Date: 20050727
  Receipt Date: 20050718
  Transmission Date: 20060218
  Serious: Yes (Other)
  Sender: FDA-Public Use
  Company Number: 2005102948

PATIENT
  Age: 63 Year
  Sex: Male
  Weight: 83.9154 kg

DRUGS (4)
  1. LIPITOR [Suspect]
     Indication: BLOOD CHOLESTEROL INCREASED
     Dosage: 10 MG (10 MG, 1 IN 1 D); UNKNOWN
  2. ACE INHIBITOR NOS (ACE INHIBITOR NOS) [Concomitant]
  3. HYDROCHLOROTHIAZIDE [Concomitant]
  4. ASA (ACETYLSSALICYLIC ACID) [Concomitant]

REACTIONS (3)
  - CORONARY ARTERIAL STENT INSERTION [None]
  - MUSCLE DISORDER [None]
  - TENOSYNOVITIS [None]
